FAERS Safety Report 7170790-6 (Version None)
Quarter: 2010Q4

REPORT INFORMATION
  Report Type: 
  Country: None (occurrence: None)
  Receive Date: 20101206
  Receipt Date: 20101129
  Transmission Date: 20110411
  Serious: Yes (Other)
  Sender: FDA-Public Use
  Company Number: 20109589

PATIENT
  Age: 61 Year
  Sex: Male

DRUGS (3)
  1. LIORESAL [Suspect]
     Indication: MUSCLE SPASTICITY
     Dosage: SEE B5 MCG, DAILY, INTRATHECAL
     Route: 037
  2. BUPIVICAINE [Concomitant]
  3. MORPHINE [Concomitant]

REACTIONS (7)
  - DEVICE OCCLUSION [None]
  - MEDICAL DEVICE COMPLICATION [None]
  - OVERDOSE [None]
  - PAIN [None]
  - PRODUCT CONTAMINATION [None]
  - THERAPEUTIC RESPONSE DECREASED [None]
  - WHITE BLOOD CELL COUNT INCREASED [None]
